FAERS Safety Report 20190643 (Version 1)
Quarter: 2021Q4

REPORT INFORMATION
  Report Type: Spontaneous
  Country: US (occurrence: None)
  Receive Date: 20211216
  Receipt Date: 20211216
  Transmission Date: 20220303
  Serious: No
  Sender: FDA-Public Use
  Company Number: US-MDD US Operations-2021SUP00040

PATIENT
  Age: 61 Year
  Sex: Female
  Weight: 56.689 kg

DRUGS (31)
  1. TOPIRAMATE [Suspect]
     Active Substance: TOPIRAMATE
     Indication: Migraine
     Dosage: 25 MG, 2X/DAY IN AM AND PM
     Route: 048
     Dates: start: 202104
  2. TOPIRAMATE [Suspect]
     Active Substance: TOPIRAMATE
     Dosage: 25 MG, 2X/DAY IN AM AND PM
     Route: 048
     Dates: start: 202103, end: 2021
  3. TOPIRAMATE [Suspect]
     Active Substance: TOPIRAMATE
     Dosage: ^BACK OFF THE 2-25 MG^; TAPER OFF
     Dates: start: 2021, end: 2021
  4. TOPIRAMATE [Suspect]
     Active Substance: TOPIRAMATE
     Dosage: 25 MG, 2X/DAY IN AM AND PM
     Route: 048
     Dates: start: 202104
  5. TOPIRAMATE [Suspect]
     Active Substance: TOPIRAMATE
     Dosage: 25 MG, 2X/DAY IN AM AND PM
     Route: 048
     Dates: start: 202103, end: 2021
  6. TOPIRAMATE [Suspect]
     Active Substance: TOPIRAMATE
     Dosage: ^BACK OFF THE 2-25 MG^; TAPER OFF
     Dates: start: 2021, end: 2021
  7. TOPIRAMATE [Suspect]
     Active Substance: TOPIRAMATE
     Dosage: 25 MG, 2X/DAY IN AM AND PM
     Route: 048
     Dates: start: 202104
  8. TOPIRAMATE [Suspect]
     Active Substance: TOPIRAMATE
     Dosage: 25 MG, 2X/DAY IN AM AND PM
     Route: 048
     Dates: start: 202103, end: 2021
  9. TOPIRAMATE [Suspect]
     Active Substance: TOPIRAMATE
     Dosage: ^BACK OFF THE 2-25 MG^; TAPER OFF
     Dates: start: 2021, end: 2021
  10. TOPIRAMATE [Suspect]
     Active Substance: TOPIRAMATE
     Dosage: 25 MG, 2X/DAY IN AM AND PM
     Route: 048
     Dates: start: 202104
  11. TOPIRAMATE [Suspect]
     Active Substance: TOPIRAMATE
     Dosage: 25 MG, 2X/DAY IN AM AND PM
     Route: 048
     Dates: start: 202103, end: 2021
  12. TOPIRAMATE [Suspect]
     Active Substance: TOPIRAMATE
     Dosage: ^BACK OFF THE 2-25 MG^; TAPER OFF
     Dates: start: 2021, end: 2021
  13. TOPIRAMATE [Suspect]
     Active Substance: TOPIRAMATE
     Dosage: 25 MG, 2X/DAY IN AM AND PM
     Route: 048
     Dates: start: 202104
  14. TOPIRAMATE [Suspect]
     Active Substance: TOPIRAMATE
     Dosage: 25 MG, 2X/DAY IN AM AND PM
     Route: 048
     Dates: start: 202103, end: 2021
  15. TOPIRAMATE [Suspect]
     Active Substance: TOPIRAMATE
     Dosage: ^BACK OFF THE 2-25 MG^; TAPER OFF
     Dates: start: 2021, end: 2021
  16. TROKENDI XR [Suspect]
     Active Substance: TOPIRAMATE
     Indication: Migraine
     Dosage: 200 MG, 1X/DAY AT BEDTIME
     Route: 048
     Dates: start: 202103
  17. TOPIRAMATE [Suspect]
     Active Substance: TOPIRAMATE
     Indication: Migraine
     Dosage: 100 MG, 2X/DAY IN AM AND PM
     Route: 048
  18. CAFFEINE [Suspect]
     Active Substance: CAFFEINE
     Dosage: UNK
     Dates: end: 202103
  19. AMITRIPTYLINE [Concomitant]
     Active Substance: AMITRIPTYLINE
     Dosage: 50 MG
  20. AMITRIPTYLINE [Concomitant]
     Active Substance: AMITRIPTYLINE
  21. AMITRIPTYLINE [Concomitant]
     Active Substance: AMITRIPTYLINE
  22. AMITRIPTYLINE [Concomitant]
     Active Substance: AMITRIPTYLINE
  23. AMITRIPTYLINE [Concomitant]
     Active Substance: AMITRIPTYLINE
  24. AMITRIPTYLINE [Concomitant]
     Active Substance: AMITRIPTYLINE
  25. DULOXETINE [Concomitant]
     Active Substance: DULOXETINE
     Dosage: 60 MG
  26. PANTOPRAZOLE [Concomitant]
     Active Substance: PANTOPRAZOLE
     Indication: Gastrointestinal disorder
     Dosage: 40 MG
  27. SPIRONOLACTONE [Concomitant]
     Active Substance: SPIRONOLACTONE
     Dosage: 100 MG
  28. TIZANIDINE [Concomitant]
     Active Substance: TIZANIDINE
     Dosage: 4 MG, 1X/DAY AT NIGHT
  29. VITAMIN B COMPLEX (1, 2, 6, 12) [Concomitant]
     Dosage: ^IN A POWDER FORM AND DRINKS IT^
     Route: 048
  30. MAGNESIUM [Concomitant]
     Active Substance: MAGNESIUM
  31. VITAMIN E [Concomitant]
     Active Substance: .ALPHA.-TOCOPHEROL

REACTIONS (2)
  - Migraine [None]
  - Therapeutic product effect decreased [None]

NARRATIVE: CASE EVENT DATE: 20200601
